FAERS Safety Report 4355035-4 (Version None)
Quarter: 2004Q2

REPORT INFORMATION
  Report Type: 
  Country: None (occurrence: None)
  Receive Date: 20040504
  Receipt Date: 20040422
  Transmission Date: 20050107
  Serious: Yes (Hospitalization)
  Sender: FDA-Public Use
  Company Number: 200411707BCC

PATIENT
  Age: 63 Year
  Sex: Female
  Weight: 90.7194 kg

DRUGS (7)
  1. ALEVE (CAPLET) [Suspect]
     Indication: INFLUENZA
     Dosage: 660 MG, TID, ORAL
     Route: 048
     Dates: start: 20040220, end: 20040222
  2. ALEVE (CAPLET) [Suspect]
     Indication: PAIN
     Dosage: 660 MG, TID, ORAL
     Route: 048
     Dates: start: 20040220, end: 20040222
  3. LOPRESSOR [Concomitant]
  4. VITAMIN CAP [Concomitant]
  5. CLONAZEPAM [Concomitant]
  6. VITAMIN A [Concomitant]
  7. VITAMIN C [Concomitant]

REACTIONS (6)
  - GASTROOESOPHAGEAL REFLUX DISEASE [None]
  - HAEMATEMESIS [None]
  - HIATUS HERNIA [None]
  - KIDNEY INFECTION [None]
  - PNEUMONIA [None]
  - RECTAL HAEMORRHAGE [None]
